FAERS Safety Report 19939034 (Version 1)
Quarter: 2021Q4

REPORT INFORMATION
  Report Type: Report from Study
  Country: BR (occurrence: BR)
  Receive Date: 20211011
  Receipt Date: 20211011
  Transmission Date: 20220304
  Serious: Yes (Other)
  Sender: FDA-Public Use
  Company Number: ALC2021BR005606

PATIENT
  Age: 16 Year
  Sex: Male

DRUGS (1)
  1. OLOPATADINE HYDROCHLORIDE [Suspect]
     Active Substance: OLOPATADINE HYDROCHLORIDE
     Indication: Product used for unknown indication
     Dosage: UNK, (STARTED 2 YEARS AGO)
     Route: 065

REACTIONS (3)
  - Keratoconus [Unknown]
  - Superficial injury of eye [Unknown]
  - Hypersensitivity [Unknown]
